FAERS Safety Report 7200327-4 (Version None)
Quarter: 2010Q4

REPORT INFORMATION
  Report Type: 
  Country: None (occurrence: None)
  Receive Date: 20101228
  Receipt Date: 20101223
  Transmission Date: 20110411
  Serious: Yes (Other)
  Sender: FDA-Public Use
  Company Number: D0069822A

PATIENT
  Sex: Male

DRUGS (1)
  1. VOTRIENT [Suspect]
     Route: 048
     Dates: start: 20100101

REACTIONS (1)
  - POLYCYTHAEMIA [None]
